FAERS Safety Report 6169733-3 (Version None)
Quarter: 2009Q2

REPORT INFORMATION
  Report Type: 
  Country: None (occurrence: None)
  Receive Date: 20090428
  Receipt Date: 20090420
  Transmission Date: 20091009
  Serious: Yes (Other)
  Sender: FDA-Public Use
  Company Number: US-BAYER-200918752NA

PATIENT
  Age: 47 Year
  Sex: Male

DRUGS (1)
  1. NEXAVAR [Suspect]
     Indication: METASTATIC RENAL CELL CARCINOMA
     Dosage: TOTAL DAILY DOSE: 800 MG  UNIT DOSE: 200 MG
     Route: 048
     Dates: start: 20090408, end: 20090414

REACTIONS (4)
  - FALL [None]
  - HAEMATOCRIT DECREASED [None]
  - MUSCLE HAEMORRHAGE [None]
  - SKELETAL INJURY [None]
